FAERS Safety Report 13972253 (Version 1)
Quarter: 2017Q3

REPORT INFORMATION
  Report Type: Spontaneous
  Country: US (occurrence: None)
  Receive Date: 20170914
  Receipt Date: 20170914
  Transmission Date: 20171128
  Serious: Yes (Other)
  Sender: FDA-Public Use
  Company Number: None

PATIENT
  Age: 59 Year
  Sex: Female

DRUGS (19)
  1. DESONIDE. [Concomitant]
     Active Substance: DESONIDE
  2. SULFASALAZINE DELAYED-RELEASE [Concomitant]
     Active Substance: SULFASALAZINE
  3. LEFLUNOMIDE. [Concomitant]
     Active Substance: LEFLUNOMIDE
  4. METHOTREXATE. [Concomitant]
     Active Substance: METHOTREXATE
  5. METOLAZONE. [Concomitant]
     Active Substance: METOLAZONE
  6. TRAMADOL HCL [Concomitant]
     Active Substance: TRAMADOL HYDROCHLORIDE
  7. STELARA [Suspect]
     Active Substance: USTEKINUMAB
     Indication: PSORIASIS
     Dosage: 45MG Q12 WEEKS SQ
     Route: 058
     Dates: start: 20161224
  8. POT CHLORIDE [Concomitant]
     Active Substance: POTASSIUM CHLORIDE
  9. TRIAMCINOLON [Concomitant]
  10. ACETAMN [Concomitant]
  11. DIPHEN/ATROP [Suspect]
     Active Substance: ATROPINE SULFATE\DIPHENOXYLATE
  12. MELOXICAM. [Concomitant]
     Active Substance: MELOXICAM
  13. BACITR ZINC [Concomitant]
  14. QUINAPRIL. [Concomitant]
     Active Substance: QUINAPRIL
  15. ZYRTEC [Concomitant]
     Active Substance: CETIRIZINE HYDROCHLORIDE
  16. FUROSEMIDE. [Concomitant]
     Active Substance: FUROSEMIDE
  17. SERTRALINE [Concomitant]
     Active Substance: SERTRALINE HYDROCHLORIDE
  18. VITAMIN D3 [Concomitant]
     Active Substance: CHOLECALCIFEROL
  19. CLONAZEPAM. [Concomitant]
     Active Substance: CLONAZEPAM

REACTIONS (2)
  - Tardive dyskinesia [None]
  - Tremor [None]
